FAERS Safety Report 23751932 (Version 1)
Quarter: 2024Q2

REPORT INFORMATION
  Report Type: Other
  Country: US (occurrence: None)
  Receive Date: 20240417
  Receipt Date: 20240417
  Transmission Date: 20240716
  Serious: Yes (Hospitalization)
  Sender: FDA-Public Use
  Company Number: US-ROCHE-3541346

PATIENT
  Age: 67 Year
  Sex: Female
  Weight: 72.64 kg

DRUGS (2)
  1. OCREVUS [Suspect]
     Active Substance: OCRELIZUMAB
     Indication: Relapsing-remitting multiple sclerosis
     Route: 042
     Dates: start: 202312
  2. AUBAGIO [Concomitant]
     Active Substance: TERIFLUNOMIDE

REACTIONS (3)
  - Cardiac failure congestive [Recovered/Resolved]
  - Chronic obstructive pulmonary disease [Recovered/Resolved]
  - Infection [Recovered/Resolved]

NARRATIVE: CASE EVENT DATE: 20240301
